FAERS Safety Report 7931668-0 (Version None)
Quarter: 2011Q4

REPORT INFORMATION
  Report Type: 
  Country: None (occurrence: None)
  Receive Date: 20111121
  Receipt Date: 20111110
  Transmission Date: 20120403
  Serious: Yes (Other)
  Sender: FDA-Public Use
  Company Number: PHFR2011IE006469

PATIENT
  Sex: Male

DRUGS (1)
  1. CLOZARIL [Suspect]
     Indication: SCHIZOPHRENIA
     Dosage: 350 MG, 150 MG MORNING AND 200 MG NIGHT
     Route: 048
     Dates: start: 20090210

REACTIONS (11)
  - CHRONIC LYMPHOCYTIC LEUKAEMIA [None]
  - URINARY TRACT INFECTION [None]
  - HYPERTENSION [None]
  - HEART RATE INCREASED [None]
  - WEIGHT INCREASED [None]
  - PLATELET DISORDER [None]
  - SOMNOLENCE [None]
  - DYSURIA [None]
  - FATIGUE [None]
  - POLLAKIURIA [None]
  - LYMPHOCYTE COUNT INCREASED [None]
